FAERS Safety Report 20439975 (Version 1)
Quarter: 2022Q1

REPORT INFORMATION
  Report Type: Spontaneous
  Country: US (occurrence: None)
  Receive Date: 20220207
  Receipt Date: 20220207
  Transmission Date: 20220424
  Serious: Yes (Life-Threatening, Other)
  Sender: FDA-Public Use
  Company Number: 2022A056646

PATIENT
  Age: 920 Month
  Sex: Female
  Weight: 48.5 kg

DRUGS (2)
  1. BUDESONIDE\FORMOTEROL\GLYCOPYRRONIUM [Suspect]
     Active Substance: BUDESONIDE\FORMOTEROL\GLYCOPYRRONIUM
     Indication: Chronic obstructive pulmonary disease
     Dosage: 160MCG/9MCG/4.8MCG, 2 INHALATIONS TWICE DAILY
     Route: 055
     Dates: start: 202107
  2. SYMBICORT [Suspect]
     Active Substance: BUDESONIDE\FORMOTEROL FUMARATE DIHYDRATE
     Indication: Chronic obstructive pulmonary disease
     Dosage: 160MCG/4.5MCG
     Route: 055
     Dates: end: 202107

REACTIONS (8)
  - Pulmonary hypertension [Unknown]
  - Deep vein thrombosis [Unknown]
  - Pulmonary sarcoidosis [Unknown]
  - Hypoxia [Unknown]
  - Cardiac failure chronic [Unknown]
  - Dyspnoea exertional [Recovering/Resolving]
  - Drug dose omission by device [Recovered/Resolved]
  - Device defective [Unknown]

NARRATIVE: CASE EVENT DATE: 20210301
